FAERS Safety Report 8323115-4 (Version None)
Quarter: 2012Q2

REPORT INFORMATION
  Report Type: 
  Country: None (occurrence: None)
  Receive Date: 20120430
  Receipt Date: 20120427
  Transmission Date: 20120825
  Serious: Yes (Other)
  Sender: FDA-Public Use
  Company Number: IT-ROCHE-1015779

PATIENT
  Sex: Male

DRUGS (6)
  1. FLUOROURACIL [Concomitant]
     Indication: GASTRIC CANCER
     Route: 042
     Dates: start: 20110525, end: 20110918
  2. CISPLATIN [Concomitant]
     Indication: GASTRIC CANCER
     Route: 042
     Dates: start: 20110525, end: 20110914
  3. BISOPROLOL FUMARATE [Concomitant]
     Route: 048
  4. HERCEPTIN [Suspect]
     Indication: GASTRIC CANCER
     Route: 042
     Dates: start: 20110525, end: 20110818
  5. ASPIRIN [Concomitant]
     Route: 048
  6. ZESTORETIC [Concomitant]
     Dosage: 20 MG + 12.5 MG TAB
     Route: 048

REACTIONS (2)
  - DIASTOLIC DYSFUNCTION [None]
  - DILATATION VENTRICULAR [None]
